APPROVED DRUG PRODUCT: AMIODARONE HYDROCHLORIDE
Active Ingredient: AMIODARONE HYDROCHLORIDE
Strength: 50MG/ML
Dosage Form/Route: INJECTABLE;INJECTION
Application: N021594 | Product #001
Applicant: INTERNATIONAL MEDICATION SYSTEMS LTD
Approved: Feb 4, 2004 | RLD: No | RS: No | Type: DISCN